FAERS Safety Report 23455211 (Version 1)
Quarter: 2024Q1

REPORT INFORMATION
  Report Type: Spontaneous
  Country: US (occurrence: US)
  Receive Date: 20240130
  Receipt Date: 20240130
  Transmission Date: 20240410
  Serious: No
  Sender: FDA-Public Use
  Company Number: US-002147023-NVSC2024US018261

PATIENT
  Sex: Female

DRUGS (2)
  1. DIOVAN [Suspect]
     Active Substance: VALSARTAN
     Indication: Product used for unknown indication
     Dosage: 80 MG
     Route: 048
  2. DIOVAN [Suspect]
     Active Substance: VALSARTAN
     Dosage: 80 MG
     Route: 048

REACTIONS (2)
  - Gout [Unknown]
  - Product blister packaging issue [Unknown]
